FAERS Safety Report 6993927-8 (Version None)
Quarter: 2010Q3

REPORT INFORMATION
  Report Type: 
  Country: None (occurrence: None)
  Receive Date: 20100917
  Receipt Date: 20100622
  Transmission Date: 20110219
  Serious: No
  Sender: FDA-Public Use
  Company Number: US-ASTRAZENECA-2010SE29160

PATIENT
  Age: 62 Year
  Sex: Female

DRUGS (2)
  1. SEROQUEL [Suspect]
     Indication: MOOD SWINGS
     Route: 048
     Dates: start: 20081001, end: 20090401
  2. SEROQUEL [Suspect]
     Dosage: 300MG AND 150MG BID IN PM AND 200MG IN AM, TOTAL 800MG PER DAY
     Route: 048

REACTIONS (4)
  - DRUG DOSE OMISSION [None]
  - FEELING JITTERY [None]
  - INITIAL INSOMNIA [None]
  - MOOD SWINGS [None]
